FAERS Safety Report 7280312-7 (Version None)
Quarter: 2011Q1

REPORT INFORMATION
  Report Type: 
  Country: None (occurrence: None)
  Receive Date: 20110203
  Receipt Date: 20110203
  Transmission Date: 20110831
  Serious: Yes (Disabling, Other)
  Sender: FDA-Public Use
  Company Number: None

PATIENT
  Sex: Female
  Weight: 81.1939 kg

DRUGS (2)
  1. NITROFURAN [Suspect]
     Indication: URINARY TRACT INFECTION
     Dosage: 2X DAILY
     Dates: start: 20090920, end: 20090927
  2. NITROFURAN [Suspect]
     Indication: URINARY TRACT INFECTION
     Dosage: 2X DAILY
     Dates: start: 20101005, end: 20101012

REACTIONS (1)
  - PLATELET COUNT DECREASED [None]
